FAERS Safety Report 5697399-5 (Version None)
Quarter: 2008Q2

REPORT INFORMATION
  Report Type: 
  Country: None (occurrence: None)
  Receive Date: 20080407
  Receipt Date: 20080327
  Transmission Date: 20081010
  Serious: Yes (Other)
  Sender: FDA-Public Use
  Company Number: PHHO2008GB04149

PATIENT
  Sex: Female
  Weight: 44.4 kg

DRUGS (2)
  1. PEGASYS [Suspect]
     Indication: HEPATITIS B VIRUS
     Dosage: 180 MCG WEEKLY
     Route: 058
     Dates: start: 20070831, end: 20071130
  2. TELBIVUDINE [Suspect]
     Indication: HEPATITIS B VIRUS
     Dosage: 600 MG, QD
     Route: 048
     Dates: start: 20070831, end: 20071130

REACTIONS (5)
  - BURNING SENSATION [None]
  - NEUROPATHY PERIPHERAL [None]
  - PAIN [None]
  - PARAESTHESIA [None]
  - VIBRATION TEST ABNORMAL [None]
